FAERS Safety Report 20567597 (Version 6)
Quarter: 2023Q1

REPORT INFORMATION
  Report Type: Other
  Country: CA (occurrence: None)
  Receive Date: 20220308
  Receipt Date: 20230312
  Transmission Date: 20230418
  Serious: Yes (Other)
  Sender: FDA-Public Use
  Company Number: CA-ROCHE-1275068

PATIENT
  Age: 46 Year
  Sex: Male
  Weight: 57 kg

DRUGS (6)
  1. ACTEMRA [Suspect]
     Active Substance: TOCILIZUMAB
     Indication: Still^s disease
     Route: 042
     Dates: start: 20130812
  2. ACTEMRA [Suspect]
     Active Substance: TOCILIZUMAB
     Route: 042
     Dates: start: 20140829
  3. ACTEMRA [Suspect]
     Active Substance: TOCILIZUMAB
     Route: 042
     Dates: start: 20150331
  4. ACTEMRA [Suspect]
     Active Substance: TOCILIZUMAB
     Route: 042
     Dates: start: 20150818, end: 20230207
  5. ACTEMRA [Suspect]
     Active Substance: TOCILIZUMAB
     Route: 042
     Dates: start: 20230306
  6. PREDNISONE [Concomitant]
     Active Substance: PREDNISONE
     Indication: Product used for unknown indication

REACTIONS (24)
  - Wound infection [Recovered/Resolved]
  - Weight increased [Recovering/Resolving]
  - Nasopharyngitis [Recovered/Resolved]
  - Vascular access site pain [Recovered/Resolved]
  - Device occlusion [Unknown]
  - Vascular access site swelling [Recovered/Resolved]
  - Infusion related reaction [Unknown]
  - Oropharyngeal pain [Recovered/Resolved]
  - Throat irritation [Recovered/Resolved]
  - Pain [Recovering/Resolving]
  - Still^s disease [Unknown]
  - Transaminases increased [Recovered/Resolved]
  - Weight decreased [Unknown]
  - Hypotension [Unknown]
  - Blood pressure diastolic decreased [Unknown]
  - Heart rate decreased [Unknown]
  - Blood pressure systolic abnormal [Unknown]
  - Respiratory rate increased [Unknown]
  - Blood pressure diastolic increased [Unknown]
  - Blood pressure diastolic abnormal [Unknown]
  - Fatigue [Recovering/Resolving]
  - Rhinorrhoea [Not Recovered/Not Resolved]
  - SARS-CoV-2 test positive [Recovered/Resolved]
  - Off label use [Unknown]

NARRATIVE: CASE EVENT DATE: 20140927
